FAERS Safety Report 6063595-0 (Version None)
Quarter: 2009Q1

REPORT INFORMATION
  Report Type: 
  Country: None (occurrence: None)
  Receive Date: 20090129
  Receipt Date: 20090120
  Transmission Date: 20090719
  Serious: Yes (Other)
  Sender: FDA-Public Use
  Company Number: PAR_02733_2009

PATIENT
  Age: 89 Year
  Sex: Female
  Weight: 46.2669 kg

DRUGS (2)
  1. MEGACE ES [Suspect]
     Indication: DECREASED APPETITE
     Dosage: (1 DF QD ORAL)
     Route: 048
     Dates: start: 20090102, end: 20090109
  2. ANTIGLAUCOMA PREPARATIONS AND MIOTICS [Concomitant]

REACTIONS (6)
  - ABASIA [None]
  - ASTHENIA [None]
  - CONDITION AGGRAVATED [None]
  - CONFUSIONAL STATE [None]
  - EPISTAXIS [None]
  - MOBILITY DECREASED [None]
